FAERS Safety Report 6340314-1 (Version None)
Quarter: 2009Q3

REPORT INFORMATION
  Report Type: 
  Country: None (occurrence: None)
  Receive Date: 20090902
  Receipt Date: 20090818
  Transmission Date: 20100115
  Serious: Yes (Death, Life-Threatening, Hospitalization)
  Sender: FDA-Public Use
  Company Number: 2009002507

PATIENT
  Age: 59 Year
  Sex: Male

DRUGS (4)
  1. TARCEVA [Suspect]
     Indication: NON-SMALL CELL LUNG CANCER
     Dosage: (100 MG AND 150 MG ALTERNATE DAYS), ORAL
     Route: 048
     Dates: start: 20080909, end: 20090501
  2. ASPIRIN [Concomitant]
  3. VENLAFAXINE HCL [Concomitant]
  4. NAFTIDROFURYL (NAFTIDROFURYL) [Concomitant]

REACTIONS (6)
  - CONFUSIONAL STATE [None]
  - HIP FRACTURE [None]
  - MENTAL IMPAIRMENT [None]
  - SEPTIC SHOCK [None]
  - UPPER LIMB FRACTURE [None]
  - URINARY TRACT INFECTION [None]
